FAERS Safety Report 8942746 (Version 1)
Quarter: 2012Q4

REPORT INFORMATION
  Report Type: 
  Country: US (occurrence: US)
  Receive Date: 20121204
  Receipt Date: 20121204
  Transmission Date: 20130627
  Serious: Yes (Congenital Anomaly, Other)
  Sender: FDA-Public Use
  Company Number: US-PFIZER INC-2012299217

PATIENT
  Sex: Female
  Weight: 2.4 kg

DRUGS (6)
  1. ZOLOFT [Suspect]
     Indication: ANXIETY
     Dosage: UNK
     Route: 064
  2. ZOLOFT [Suspect]
     Indication: DEPRESSION
     Dosage: 50 mg, UNK
     Route: 064
     Dates: start: 20050621
  3. ZOLOFT [Suspect]
     Dosage: 100 mg, 1x/day,every night at bedtime
     Route: 064
     Dates: start: 20050819
  4. DARVOCET [Concomitant]
     Dosage: UNK
     Route: 064
  5. ZOFRAN [Concomitant]
     Indication: NAUSEA
     Dosage: UNK
     Route: 064
  6. PRENATAL VITAMINS [Concomitant]
     Dosage: UNK
     Route: 064

REACTIONS (5)
  - Maternal exposure timing unspecified [Unknown]
  - Ventricular septal defect [Unknown]
  - Sepsis neonatal [Unknown]
  - Neonatal respiratory distress syndrome [Unknown]
  - Premature baby [Unknown]
